FAERS Safety Report 24196977 (Version 1)
Quarter: 2024Q3

REPORT INFORMATION
  Report Type: Report from Study
  Country: ES (occurrence: ES)
  Receive Date: 20240810
  Receipt Date: 20240810
  Transmission Date: 20241016
  Serious: Yes (Other)
  Sender: ABBVIE
  Company Number: ES-ABBVIE-5869460

PATIENT
  Sex: Female

DRUGS (2)
  1. CARBIDOPA\LEVODOPA [Suspect]
     Active Substance: CARBIDOPA\LEVODOPA
     Indication: Parkinson^s disease
     Route: 050
     Dates: start: 20170206
  2. CARBIDOPA\LEVODOPA [Suspect]
     Active Substance: CARBIDOPA\LEVODOPA

REACTIONS (9)
  - Disease risk factor [Unknown]
  - Stoma site discharge [Not Recovered/Not Resolved]
  - Stoma site reaction [Not Recovered/Not Resolved]
  - Stoma site reaction [Recovered/Resolved]
  - Stoma complication [Not Recovered/Not Resolved]
  - Stoma complication [Recovered/Resolved]
  - Stoma site erythema [Recovering/Resolving]
  - Constipation [Unknown]
  - Stoma site reaction [Recovered/Resolved]

NARRATIVE: CASE EVENT DATE: 20240101
